FAERS Safety Report 24148613 (Version 1)
Quarter: 2024Q3

REPORT INFORMATION
  Report Type: Spontaneous
  Country: US (occurrence: US)
  Receive Date: 20240729
  Receipt Date: 20240729
  Transmission Date: 20241017
  Serious: Yes (Other)
  Sender: BIOMARIN
  Company Number: US-SA-SAC20240722000775

PATIENT

DRUGS (1)
  1. LARONIDASE [Suspect]
     Active Substance: LARONIDASE
     Indication: Mucopolysaccharidosis I
     Dosage: 43.5 UNITS NOT SPECIFIED/QW
     Route: 042
     Dates: start: 201110

REACTIONS (6)
  - Corneal opacity [Unknown]
  - Hypoacusis [Unknown]
  - Condition aggravated [Unknown]
  - Cardiac disorder [Unknown]
  - Arthralgia [Unknown]
  - Fatigue [Unknown]
